FAERS Safety Report 8546888 (Version 2)
Quarter: 2013Q1

REPORT INFORMATION
  Report Type: Spontaneous
  Country: US (occurrence: US)
  Receive Date: 20120504
  Receipt Date: 20130318
  Transmission Date: 20140127
  Serious: Yes (Hospitalization, Other)
  Sender: FDA-Public Use
  Company Number: US-B.I. PHARMACEUTICALS,INC./RIDGEFIELD-2011-BP-17478BP

PATIENT
  Sex: Female

DRUGS (5)
  1. PRADAXA [Suspect]
     Indication: ATRIAL FIBRILLATION
     Dosage: 300 MG
     Route: 048
     Dates: start: 201105
  2. LISINOPRIL [Concomitant]
     Indication: HYPERTENSION
     Dosage: 20 MG
     Route: 048
     Dates: start: 2002
  3. TOVIAZ [Concomitant]
     Indication: BLADDER DISORDER
     Dosage: 8 MG
     Route: 048
     Dates: start: 2009
  4. ARIMIDEX [Concomitant]
     Dosage: 1 MG
     Route: 048
  5. PAIN MEDICATION [Concomitant]
     Route: 048

REACTIONS (6)
  - Breast cancer female [Recovered/Resolved]
  - Cardiac neoplasm unspecified [Recovered/Resolved]
  - Contusion [Not Recovered/Not Resolved]
  - Vision blurred [Not Recovered/Not Resolved]
  - Photophobia [Not Recovered/Not Resolved]
  - Increased tendency to bruise [Not Recovered/Not Resolved]
